FAERS Safety Report 6782677-9 (Version None)
Quarter: 2010Q2

REPORT INFORMATION
  Report Type: 
  Country: None (occurrence: None)
  Receive Date: 20100621
  Receipt Date: 20100607
  Transmission Date: 20101027
  Serious: Yes (Hospitalization)
  Sender: FDA-Public Use
  Company Number: DE-ELI_LILLY_AND_COMPANY-DE201006002057

PATIENT
  Age: 61 Year
  Sex: Female

DRUGS (8)
  1. ZYPREXA [Suspect]
     Indication: DEPRESSION
     Dosage: 5 MG, UNK
     Route: 048
     Dates: start: 20100330, end: 20100331
  2. ZYPREXA [Suspect]
     Dosage: 5 MG, UNK
  3. PANTOZOL [Concomitant]
     Dosage: 40 MG, UNK
     Route: 048
  4. REMERGIL [Concomitant]
     Dosage: 30 MG, UNK
     Route: 048
     Dates: start: 20100305, end: 20100331
  5. REMERGIL [Concomitant]
     Dosage: 15 MG, DAILY (1/D)
  6. LORAZEPAM [Concomitant]
     Dosage: 2 MG, UNK
     Route: 048
     Dates: start: 20100329, end: 20100331
  7. DOXEPIN HCL [Concomitant]
     Indication: AGITATION
     Dosage: 12.5 MG, UNK
     Route: 042
     Dates: start: 20100330, end: 20100331
  8. TUTOFUSIN [Concomitant]
     Indication: AGITATION
     Dosage: 500 ML, UNK
     Dates: start: 20100330

REACTIONS (3)
  - DELIRIUM [None]
  - DRUG INTERACTION [None]
  - OFF LABEL USE [None]
